FAERS Safety Report 14914147 (Version 1)
Quarter: 2018Q2

REPORT INFORMATION
  Report Type: Spontaneous
  Country: US (occurrence: US)
  Receive Date: 20180518
  Receipt Date: 20180518
  Transmission Date: 20180711
  Serious: Yes (Other)
  Sender: FDA-Public Use
  Company Number: None

PATIENT
  Age: 49 Year
  Sex: Male
  Weight: 90.72 kg

DRUGS (3)
  1. LATANOPROST 0.005% 2.5ML (GREENSTONE = MANUFACTURER) [Suspect]
     Active Substance: LATANOPROST
     Indication: GLAUCOMA
     Dosage: 3 BOXES AT BEDTIME ONE DROP INTO THE RIGHT EYE
     Dates: start: 20180430, end: 20180430
  2. OLOPATADINE. [Concomitant]
     Active Substance: OLOPATADINE
  3. ALLEGRA [Concomitant]
     Active Substance: FEXOFENADINE HYDROCHLORIDE

REACTIONS (2)
  - Product substitution issue [None]
  - Eye irritation [None]

NARRATIVE: CASE EVENT DATE: 20180430
